FAERS Safety Report 10744199 (Version 1)
Quarter: 2015Q1

REPORT INFORMATION
  Report Type: Spontaneous
  Country: US (occurrence: None)
  Receive Date: 20150126
  Receipt Date: 20150126
  Transmission Date: 20150721
  Serious: Yes (Hospitalization)
  Sender: FDA-Public Use
  Company Number: None

PATIENT
  Age: 76 Year
  Sex: Female

DRUGS (1)
  1. ORENCIA [Suspect]
     Active Substance: ABATACEPT
     Dosage: 125MG, WEEKLY, SQ
     Route: 058
     Dates: start: 20140810, end: 20150102

REACTIONS (4)
  - Chest pain [None]
  - Burning sensation [None]
  - Weight decreased [None]
  - Decreased appetite [None]

NARRATIVE: CASE EVENT DATE: 20140920
